FAERS Safety Report 15648635 (Version 4)
Quarter: 2019Q2

REPORT INFORMATION
  Report Type: Report from Study
  Country: None (occurrence: US)
  Receive Date: 20181122
  Receipt Date: 20190515
  Transmission Date: 20190711
  Serious: Yes (Hospitalization, Other)
  Sender: FDA-Public Use
  Company Number: US-ABBVIE-18K-163-2554123-00

PATIENT
  Age: 44 Year
  Sex: Female

DRUGS (2)
  1. HUMIRA [Suspect]
     Active Substance: ADALIMUMAB
     Indication: CROHN^S DISEASE
     Dosage: HUMIRA CITRATE FREE PEN
     Route: 058
     Dates: start: 20180615, end: 20181012
  2. HUMIRA [Suspect]
     Active Substance: ADALIMUMAB
     Dosage: HUMIRA CITRATE FREE PEN
     Route: 058
     Dates: start: 20181207, end: 20190405

REACTIONS (7)
  - Spinal cord compression [Unknown]
  - Dehydration [Unknown]
  - Spinal deformity [Unknown]
  - Cervical spinal stenosis [Unknown]
  - Gastrointestinal haemorrhage [Unknown]
  - Kidney infection [Recovered/Resolved]
  - Clostridium difficile infection [Recovering/Resolving]

NARRATIVE: CASE EVENT DATE: 2018
